FAERS Safety Report 5759652-6 (Version None)
Quarter: 2008Q2

REPORT INFORMATION
  Report Type: 
  Country: None (occurrence: None)
  Receive Date: 20080605
  Receipt Date: 20080530
  Transmission Date: 20081010
  Serious: Yes (Other)
  Sender: FDA-Public Use
  Company Number: US-ROCHE-567773

PATIENT
  Sex: Male

DRUGS (2)
  1. ISOTRETINOIN [Suspect]
     Indication: DRUG USE FOR UNKNOWN INDICATION
     Dosage: PATIENT WAS DISPENSED ACCUTANE 40 MG ON 3 APRIL 2008
     Route: 065
  2. CLARAVIS [Suspect]
     Indication: DRUG USE FOR UNKNOWN INDICATION
     Dosage: DISPENSED CLARAVIS 40MG ON 7FEB,10MG ON 4MAR,40MG ON 4MAR,20MG ON 3APR,40MG ON 7MAY,20MG ON 7MAY2008
     Route: 065

REACTIONS (1)
  - SUICIDAL IDEATION [None]
